FAERS Safety Report 5827572-4 (Version None)
Quarter: 2008Q3

REPORT INFORMATION
  Report Type: 
  Country: None (occurrence: None)
  Receive Date: 20080730
  Receipt Date: 20080728
  Transmission Date: 20090109
  Serious: Yes (Life-Threatening, Hospitalization)
  Sender: FDA-Public Use
  Company Number: DE-BOEHRINGER INGELHEIM GMBH, GERMANY-2008-DE-03423DE

PATIENT
  Sex: Female
  Weight: 49 kg

DRUGS (11)
  1. SIFROL 0,18 MG [Suspect]
     Indication: RESTLESS LEGS SYNDROME
     Dates: start: 20060701, end: 20080422
  2. RAMIPRIL 2,5MG/12,5 MG [Concomitant]
     Indication: HYPERTENSION
     Dosage: 2,5 MG/12,5 MG
  3. RAMIPRIL 2,5MG/12,5 MG [Concomitant]
     Indication: MITRAL VALVE REPLACEMENT
  4. BISOPROLOL 5 MG [Concomitant]
     Indication: HYPERTENSION
  5. BISOPROLOL 5 MG [Concomitant]
     Indication: MITRAL VALVE REPLACEMENT
  6. TORASEMID 10 MG [Concomitant]
     Indication: HYPERTENSION
  7. TORASEMID 10 MG [Concomitant]
     Indication: MITRAL VALVE REPLACEMENT
  8. AMIODARONE HCL [Concomitant]
     Indication: HYPERTENSION
  9. AMIODARONE HCL [Concomitant]
     Indication: MITRAL VALVE REPLACEMENT
  10. MARCUMAR [Concomitant]
     Dosage: ACCORDING TO INR
  11. EUTHYROX 100 MCG [Concomitant]
     Indication: THYROIDECTOMY

REACTIONS (7)
  - DELUSION [None]
  - FEAR [None]
  - HALLUCINATION [None]
  - PANIC DISORDER [None]
  - PARANOIA [None]
  - PSYCHOTIC DISORDER [None]
  - ROAD TRAFFIC ACCIDENT [None]
